FAERS Safety Report 9556267 (Version 1)
Quarter: 2013Q3

REPORT INFORMATION
  Report Type: Spontaneous
  Country: US (occurrence: None)
  Receive Date: 20130906
  Receipt Date: 20130906
  Transmission Date: 20140515
  Serious: Yes (Hospitalization)
  Sender: FDA-Public Use
  Company Number: 163-POMAL-13063036

PATIENT
  Age: 51 Year
  Sex: Male

DRUGS (1)
  1. POMALYST [Suspect]
     Route: 048
     Dates: start: 20130525, end: 20130614

REACTIONS (1)
  - Pneumonia [None]
